FAERS Safety Report 5267489-X (Version None)
Quarter: 2007Q1

REPORT INFORMATION
  Report Type: 
  Country: None (occurrence: None)
  Receive Date: 20061213
  Receipt Date: 20000201
  Transmission Date: 20070707
  Serious: Yes (Other)
  Sender: FDA-Public Use
  Company Number: 2000UW00549

PATIENT
  Age: 67 Year
  Sex: Male

DRUGS (1)
  1. NOLVADEX [Suspect]
     Indication: BRAIN NEOPLASM
     Dates: start: 19991101

REACTIONS (1)
  - SKIN HYPERTROPHY [None]
